FAERS Safety Report 4512244-9 (Version None)
Quarter: 2004Q4

REPORT INFORMATION
  Report Type: 
  Country: None (occurrence: None)
  Receive Date: 20041123
  Receipt Date: 20041109
  Transmission Date: 20050328
  Serious: Yes (Hospitalization)
  Sender: FDA-Public Use
  Company Number: FABR-10871

PATIENT
  Sex: Female

DRUGS (2)
  1. FABRAZYME [Suspect]
     Indication: FABRY'S DISEASE
     Dosage: 79 MG Q2WKS IV
     Route: 042
     Dates: start: 20030909, end: 20040824
  2. FABRAZYME [Suspect]
     Indication: FABRY'S DISEASE
     Dosage: 79 MG Q2WKS IV
     Route: 042

REACTIONS (4)
  - CONFUSIONAL STATE [None]
  - DEPRESSION [None]
  - MANIA [None]
  - PAIN [None]
